FAERS Safety Report 12799819 (Version 1)
Quarter: 2016Q3

REPORT INFORMATION
  Report Type: Spontaneous
  Country: US (occurrence: US)
  Receive Date: 20160930
  Receipt Date: 20160930
  Transmission Date: 20161109
  Serious: Yes (Other)
  Sender: FDA-Public Use
  Company Number: US-INDIVIOR LIMITED-INDV-095072-2016

PATIENT
  Sex: Male

DRUGS (29)
  1. VIAGRA [Suspect]
     Active Substance: SILDENAFIL CITRATE
     Indication: PRODUCT USED FOR UNKNOWN INDICATION
     Dosage: 100 MG TABLET AT A DOSE OF 1 TABLET AS NECESSARY APPROXIMATELY 1 HOUR BEFORE SEXUAL ACTIVITY
     Route: 048
  2. CHANTIX [Suspect]
     Active Substance: VARENICLINE TARTRATE
     Indication: PRODUCT USED FOR UNKNOWN INDICATION
     Dosage: 1 MG TWICE DAILY
     Route: 048
  3. VITAMIN B12 [Concomitant]
     Active Substance: CYANOCOBALAMIN
     Indication: PRODUCT USED FOR UNKNOWN INDICATION
     Dosage: 1,000 MCG/1 ML INJECTION AT A DOSE OF 1 ML EVERY WEEK
     Route: 030
  4. METHADONE HYDROCHLORIDE. [Concomitant]
     Active Substance: METHADONE HYDROCHLORIDE
     Indication: PAIN
     Dosage: 10 MG TABLET AT A DOSE OF 1 TABLET EVERY 8 HOURS AS NEEDED
     Route: 048
  5. HYDROCHLOROTHIAZIDE. [Concomitant]
     Active Substance: HYDROCHLOROTHIAZIDE
     Indication: PRODUCT USED FOR UNKNOWN INDICATION
     Dosage: 25 MG TABLET 1 TABLET DAILY
     Route: 048
  6. ZOLPIDEM TARTRATE. [Concomitant]
     Active Substance: ZOLPIDEM TARTRATE
     Indication: PRODUCT USED FOR UNKNOWN INDICATION
     Dosage: 10 MG TABLET AT A DOSE OF 1 TABLET AT BEDTIME
     Route: 048
  7. NORVIR [Concomitant]
     Active Substance: RITONAVIR
     Indication: PRODUCT USED FOR UNKNOWN INDICATION
     Dosage: 100MG TABLET AT A DOSE OF ONE TABLET DALLY
     Route: 065
  8. NASACORT AQ [Concomitant]
     Active Substance: TRIAMCINOLONE ACETONIDE
     Indication: PRODUCT USED FOR UNKNOWN INDICATION
     Dosage: 55MCG/1ACTUATION NASAL SPRAY 2 SPRAYS DALLY
     Route: 045
  9. NORVASC [Suspect]
     Active Substance: AMLODIPINE BESYLATE
     Indication: PRODUCT USED FOR UNKNOWN INDICATION
     Dosage: 10 MG DAILY
     Route: 048
  10. GLYCOLAX [Concomitant]
     Active Substance: POLYETHYLENE GLYCOL 3350
     Indication: PRODUCT USED FOR UNKNOWN INDICATION
     Dosage: POWDER FOR ORAL SOLUTION 17 GM IN 8 OUNCES OF WATER DAILY
     Route: 065
  11. TIMOPTIC [Concomitant]
     Active Substance: TIMOLOL MALEATE
     Indication: PRODUCT USED FOR UNKNOWN INDICATION
     Dosage: 1 DROP TO AFFECTED EYES TWICE DAILY
     Route: 047
  12. RALTEGRAVIR. [Concomitant]
     Active Substance: RALTEGRAVIR
     Indication: PRODUCT USED FOR UNKNOWN INDICATION
     Dosage: 400MG TABLET AT A DOSE OF 1 TABLET TWICE DAILY
     Route: 048
  13. RITONAVIR. [Concomitant]
     Active Substance: RITONAVIR
     Indication: PRODUCT USED FOR UNKNOWN INDICATION
     Dosage: 100 MG
     Route: 065
  14. TYLENOL [Concomitant]
     Active Substance: ACETAMINOPHEN
     Indication: PAIN
     Dosage: 325 MG TABLET AT A DOSE OF 2 TABLETS 4 TIMES DAILY AS NEEDED
     Route: 048
  15. PREZISTA [Concomitant]
     Active Substance: DARUNAVIR ETHANOLATE
     Indication: PRODUCT USED FOR UNKNOWN INDICATION
     Dosage: 800MG TABLET AT A DOSE OF 1 TABLET DAILY
     Route: 048
  16. ALBUTEROL                          /00139501/ [Concomitant]
     Active Substance: ALBUTEROL
     Indication: PRODUCT USED FOR UNKNOWN INDICATION
     Dosage: 90MCG/1 ACTUATION ORAL INHALER 2 PUFFS BY MOUTH Q4 TO 6 HOUR
     Route: 048
  17. HUMALOG [Concomitant]
     Active Substance: INSULIN LISPRO
     Dosage: BD PEN NEEDLE SHORT 31G X 5/16 SED AS DIRECTED 4 TIMES DALLY
     Route: 065
  18. SUBOXONE [Suspect]
     Active Substance: BUPRENORPHINE HYDROCHLORIDE\NALOXONE HYDROCHLORIDE
     Indication: DRUG DEPENDENCE
     Dosage: 16 MG
     Route: 065
  19. TRUVADA [Concomitant]
     Active Substance: EMTRICITABINE\TENOFOVIR DISOPROXIL FUMARATE
     Indication: PRODUCT USED FOR UNKNOWN INDICATION
     Dosage: 300MG/200MG TABLET AT A DOSE OF 1 TABLET DAILY
     Route: 048
  20. LANTUS [Concomitant]
     Active Substance: INSULIN GLARGINE
     Dosage: BD PEN NEEDLE SHORT 31G X 5/16 SED AS DIRECTED 4 TIMES DALLY
     Route: 058
  21. LAC-HYDRIN [Concomitant]
     Active Substance: AMMONIUM LACTATE
     Indication: PRODUCT USED FOR UNKNOWN INDICATION
     Dosage: 12% LOTION APPLY SUFFICIENT AMOUNT TO AFFECTED AREA ONCE DALLY AND RUB IN
     Route: 062
  22. NICODERM CQ [Concomitant]
     Active Substance: NICOTINE
     Indication: PRODUCT USED FOR UNKNOWN INDICATION
     Dosage: 21MG TRANSDERMAL PATCH, 1 PATCH TO HAIRLESS AREA ON UPPER ARMS DAILY AND TO REMOVE AFTER 24 HOURS
     Route: 062
  23. SINGULAIR [Concomitant]
     Active Substance: MONTELUKAST SODIUM
     Indication: PRODUCT USED FOR UNKNOWN INDICATION
     Dosage: 10MG TABLET AT A DOSE OF 1 TABLET EACH EVENING
     Route: 048
  24. LYRICA [Suspect]
     Active Substance: PREGABALIN
     Indication: PRODUCT USED FOR UNKNOWN INDICATION
     Dosage: 150 MG CAPSULES AT A DOSE OF 1 CAPSULE 3 TIMES
     Route: 048
  25. NICORETTE [Concomitant]
     Active Substance: NICOTINE
     Indication: SMOKING CESSATION THERAPY
     Dosage: 2MG/1SQUAR GUM 1 EACH (2 MG TOTAL) EVERY 2 HOURS AS NEEDED (MAX DAILY DOSE 24 MG)
     Route: 048
  26. LANTUS [Concomitant]
     Active Substance: INSULIN GLARGINE
     Indication: PRODUCT USED FOR UNKNOWN INDICATION
     Dosage: 100 UNITS/1 ML INJECTION INJECT 40 UNITS SQ Q AM AND 40 UNITS QHS
     Route: 058
  27. MULTIVITAMIN                       /07504101/ [Concomitant]
     Active Substance: VITAMINS
     Indication: PRODUCT USED FOR UNKNOWN INDICATION
     Dosage: UNKNOWN
     Route: 065
  28. HUMALOG [Concomitant]
     Active Substance: INSULIN LISPRO
     Indication: PRODUCT USED FOR UNKNOWN INDICATION
     Dosage: 100 UNITS/1 ML PEN SYSTEM, DISPOSABLE 20 UNITS TID FOR B8G}100 PLUS 5 U ADDITIONAL FOR BG}300
     Route: 065
  29. LISINOPRIL. [Suspect]
     Active Substance: LISINOPRIL
     Indication: PRODUCT USED FOR UNKNOWN INDICATION
     Dosage: 40 MG, ONE TABLET DAILY
     Route: 048

REACTIONS (24)
  - Cough [Unknown]
  - Seizure [Unknown]
  - Essential hypertension [Unknown]
  - Gastrooesophageal reflux disease [Unknown]
  - Restless legs syndrome [Unknown]
  - Neuropathy peripheral [Unknown]
  - Muscular weakness [Unknown]
  - Drug dependence [Unknown]
  - Post-traumatic stress disorder [Unknown]
  - Erectile dysfunction [Unknown]
  - Back pain [Unknown]
  - Insomnia [Unknown]
  - Generalised anxiety disorder [Unknown]
  - Foot fracture [Unknown]
  - Hypogonadism male [Unknown]
  - Hyperlipidaemia [Unknown]
  - Anogenital dysplasia [Unknown]
  - Vitamin B12 deficiency [Unknown]
  - Anger [Unknown]
  - Osteoporosis [Unknown]
  - Weight decreased [Unknown]
  - Affective disorder [Unknown]
  - Pain in extremity [Unknown]
  - Hypertension [Unknown]
